FAERS Safety Report 9225487 (Version 2)
Quarter: 2013Q2

REPORT INFORMATION
  Report Type: Report from Study
  Country: IT (occurrence: IT)
  Receive Date: 20130411
  Receipt Date: 20130617
  Transmission Date: 20140414
  Serious: Yes (Other)
  Sender: FDA-Public Use
  Company Number: IT-ROCHE-1208787

PATIENT
  Age: 49 Year
  Sex: Male

DRUGS (3)
  1. ALTEPLASE [Suspect]
     Indication: PULMONARY EMBOLISM
     Route: 042
  2. HEPARIN [Suspect]
     Indication: PULMONARY EMBOLISM
     Route: 042
  3. WARFARIN [Suspect]
     Indication: PULMONARY EMBOLISM
     Route: 065

REACTIONS (3)
  - Gastrointestinal haemorrhage [Recovered/Resolved]
  - Activated partial thromboplastin time prolonged [Unknown]
  - Overdose [Unknown]
